FAERS Safety Report 17640948 (Version 4)
Quarter: 2020Q4

REPORT INFORMATION
  Report Type: Report from Study
  Country: AU (occurrence: AU)
  Receive Date: 20200407
  Receipt Date: 20201204
  Transmission Date: 20210113
  Serious: No
  Sender: FDA-Public Use
  Company Number: AU-TOLMAR, INC.-2019AU005447

PATIENT
  Sex: Male

DRUGS (1)
  1. ELIGARD [Suspect]
     Active Substance: LEUPROLIDE ACETATE
     Indication: PROSTATE CANCER
     Dosage: 45 MG, Q 6 MONTH
     Route: 058
     Dates: start: 20190523

REACTIONS (8)
  - Weight decreased [Unknown]
  - Prostatic specific antigen increased [Unknown]
  - Tooth abscess [Not Recovered/Not Resolved]
  - Flank pain [Not Recovered/Not Resolved]
  - Osteoporosis [Not Recovered/Not Resolved]
  - Skin infection [Unknown]
  - Nausea [Not Recovered/Not Resolved]
  - Hot flush [Unknown]
